FAERS Safety Report 20164343 (Version 1)
Quarter: 2021Q4

REPORT INFORMATION
  Report Type: Spontaneous
  Country: HR (occurrence: HR)
  Receive Date: 20211209
  Receipt Date: 20211209
  Transmission Date: 20220303
  Serious: Yes (Life-Threatening, Hospitalization, Other)
  Sender: FDA-Public Use
  Company Number: None

PATIENT
  Sex: Male
  Weight: 115 kg

DRUGS (4)
  1. RISPERIDONE [Suspect]
     Active Substance: RISPERIDONE
     Indication: Mental disorder
     Dosage: 30 MG, ADR ADEQUATELY LABELLED: ASPIRATION PNEUMONIA, UNCONSCIOUS, SOMNOLENCE, HYPOTENSION, ADR NOT
     Route: 048
     Dates: start: 20210625, end: 20210625
  2. CLOZAPINE [Suspect]
     Active Substance: CLOZAPINE
     Indication: Mental disorder
     Dosage: 1750 MG, ADR ADEQUATELY LABELLED: YES
     Route: 048
     Dates: start: 20210625, end: 20210625
  3. VALPROATE SODIUM [Suspect]
     Active Substance: VALPROATE SODIUM
     Indication: Mental disorder
     Dosage: 15 GRAM, ADR ADEQUATELY LABELLED: SOMNOLENCE, HYPOTENSION, UNCONSCIOUS, ADR NOT ADEQUATELY LABELLED:
     Route: 048
     Dates: start: 20210625, end: 20210625
  4. BISOPROLOL FUMARATE [Suspect]
     Active Substance: BISOPROLOL FUMARATE
     Indication: Mental disorder
     Dosage: 200 MG, ADR ADEQUATELY LABELLED: HYPOTENSION, SOMNOLENCE, ADR NOT ADEQUATELY LABELLED: CARDIAC ARRES
     Route: 048
     Dates: start: 20210625, end: 20210625

REACTIONS (7)
  - Pneumonia aspiration [Unknown]
  - Hypotension [Unknown]
  - Loss of consciousness [Unknown]
  - Intentional overdose [Unknown]
  - Somnolence [Unknown]
  - Cardiac arrest [Unknown]
  - Suicide attempt [Unknown]

NARRATIVE: CASE EVENT DATE: 20210625
